FAERS Safety Report 9859996 (Version 1)
Quarter: 2014Q1

REPORT INFORMATION
  Report Type: Spontaneous
  Country: US (occurrence: US)
  Receive Date: 20140131
  Receipt Date: 20140131
  Transmission Date: 20141002
  Serious: Yes (Other)
  Sender: FDA-Public Use
  Company Number: US-GILEAD-2014-0093330

PATIENT
  Age: 40 Year
  Sex: Male

DRUGS (1)
  1. STRIBILD [Suspect]
     Indication: HIV INFECTION
     Dosage: 800 MG, UNK
     Route: 065

REACTIONS (7)
  - Diabetes mellitus [Unknown]
  - Herpes zoster [Unknown]
  - Thirst [Unknown]
  - Bladder disorder [Unknown]
  - Dizziness [Unknown]
  - Fatigue [Unknown]
  - Pain [Unknown]
